FAERS Safety Report 8234102-9 (Version None)
Quarter: 2012Q1

REPORT INFORMATION
  Report Type: 
  Country: None (occurrence: None)
  Receive Date: 20120326
  Receipt Date: 20120326
  Transmission Date: 20120608
  Serious: Yes (Hospitalization)
  Sender: FDA-Public Use
  Company Number: None

PATIENT
  Sex: Female
  Weight: 63.502 kg

DRUGS (1)
  1. MITOMYCIN [Suspect]
     Indication: SCAR
     Dosage: 1.5MG  LEFT ELBOW
     Dates: start: 20120125, end: 20120125

REACTIONS (4)
  - ESCHAR [None]
  - WOUND INFECTION [None]
  - INFLAMMATION [None]
  - ARTHRALGIA [None]
